FAERS Safety Report 10137697 (Version 1)
Quarter: 2013Q3

REPORT INFORMATION
  Report Type: Spontaneous
  Country: US (occurrence: None)
  Receive Date: 20130327
  Receipt Date: 20130327
  Transmission Date: 20140515
  Serious: Yes (Hospitalization)
  Sender: FDA-Public Use
  Company Number: 2012-2484

PATIENT
  Age: 42 Year
  Sex: Female

DRUGS (1)
  1. SOMATULINE DEPOT [Suspect]
     Indication: ACROMEGALY
     Dosage: ONCE EVERY 14 DAYS (120 MG, 1 IN 14 D)
     Route: 058
     Dates: start: 20101022

REACTIONS (3)
  - Concussion [None]
  - Road traffic accident [None]
  - Drug dose omission [None]
